FAERS Safety Report 15663626 (Version 2)
Quarter: 2018Q4

REPORT INFORMATION
  Report Type: Spontaneous
  Country: US (occurrence: US)
  Receive Date: 20181128
  Receipt Date: 20181222
  Transmission Date: 20190205
  Serious: Yes (Other)
  Sender: FDA-Public Use
  Company Number: US-APOTEX-2018AP025000

PATIENT
  Sex: Male

DRUGS (1)
  1. CARBAMAZEPINE. [Suspect]
     Active Substance: CARBAMAZEPINE
     Indication: TRIGEMINAL NEURALGIA
     Dosage: UNK
     Route: 065

REACTIONS (6)
  - Aphasia [Unknown]
  - Drug effect incomplete [Unknown]
  - Hypoaesthesia oral [Unknown]
  - Visual impairment [Unknown]
  - Incorrect dose administered [Unknown]
  - Gait inability [Unknown]
